FAERS Safety Report 16066094 (Version 1)
Quarter: 2019Q2

REPORT INFORMATION
  Report Type: Spontaneous
  Country: US (occurrence: US)
  Receive Date: 20190312
  Receipt Date: 20190312
  Transmission Date: 20190711
  Serious: Yes (Congenital Anomaly, Other)
  Sender: FDA-Public Use
  Company Number: None

PATIENT
  Age: 64 Year
  Sex: Male
  Weight: 88.2 kg

DRUGS (4)
  1. AMLODIPINE BESYLATE. [Suspect]
     Active Substance: AMLODIPINE BESYLATE
     Indication: HYPERTENSION
     Route: 048
     Dates: start: 20190130, end: 20190312
  2. FINASTERIDE 5MG [Concomitant]
     Active Substance: FINASTERIDE
     Dates: start: 20180801
  3. ATORVASTATIN 10MG [Concomitant]
     Active Substance: ATORVASTATIN
     Dates: start: 20171218
  4. TAMSULOSIN HCL CAPS 0.4MG [Concomitant]
     Active Substance: TAMSULOSIN HYDROCHLORIDE
     Dates: start: 20190305

REACTIONS (2)
  - Induration [None]
  - Pain [None]

NARRATIVE: CASE EVENT DATE: 20181001
